FAERS Safety Report 10143675 (Version 2)
Quarter: 2014Q2

REPORT INFORMATION
  Report Type: Spontaneous
  Country: US (occurrence: US)
  Receive Date: 20140430
  Receipt Date: 20140506
  Transmission Date: 20141212
  Serious: Yes (Other)
  Sender: FDA-Public Use
  Company Number: US-PFIZER INC-2014119064

PATIENT
  Age: 63 Year
  Sex: Male
  Weight: 90.7 kg

DRUGS (2)
  1. ADVIL GELCAPS [Suspect]
     Indication: BACK PAIN
     Dosage: UNK, SINGLE
     Route: 048
     Dates: start: 20140425, end: 20140425
  2. ADVIL GELCAPS [Suspect]
     Indication: ARTHRALGIA

REACTIONS (6)
  - Haematochezia [Recovering/Resolving]
  - Dyspepsia [Recovered/Resolved]
  - Vomiting [Recovered/Resolved]
  - Diarrhoea [Recovered/Resolved]
  - Visual impairment [Recovering/Resolving]
  - Asthenia [Recovering/Resolving]
